FAERS Safety Report 4627525-8 (Version None)
Quarter: 2005Q2

REPORT INFORMATION
  Report Type: 
  Country: None (occurrence: None)
  Receive Date: 20050405
  Receipt Date: 20050321
  Transmission Date: 20051028
  Serious: Yes (Hospitalization, Other)
  Sender: FDA-Public Use
  Company Number: HQWYE196921MAR05

PATIENT
  Age: 24 Year
  Sex: Female
  Weight: 56.69 kg

DRUGS (2)
  1. TRI-LEVLEN-21 (LEVONORGESTREL/ETHINYL ESTRADIOL, TABLET) [Suspect]
     Dosage: 1 TABLET 1X PER 1 DAY, ORAL
     Route: 048
     Dates: start: 20040101, end: 20041115
  2. ISOTRETINOIN [Suspect]
     Indication: ACNE
     Dosage: 10MG DAILY ALTERNATING WITH 10MG 2X DAILY, ORAL
     Route: 048
     Dates: start: 20041030, end: 20041115

REACTIONS (2)
  - SUBCLAVIAN VEIN THROMBOSIS [None]
  - THORACIC OUTLET SYNDROME [None]
